FAERS Safety Report 9628835 (Version 2)
Quarter: 2013Q4

REPORT INFORMATION
  Report Type: Spontaneous
  Country: FR (occurrence: FR)
  Receive Date: 20131017
  Receipt Date: 20131230
  Transmission Date: 20140711
  Serious: Yes (Death, Life-Threatening, Hospitalization, Other)
  Sender: FDA-Public Use
  Company Number: FR-JNJFOC-20131007860

PATIENT
  Age: 83 Year
  Sex: Female

DRUGS (10)
  1. XARELTO [Suspect]
     Indication: CEREBROVASCULAR ACCIDENT PROPHYLAXIS
     Route: 065
     Dates: start: 20130212, end: 20131003
  2. XARELTO [Suspect]
     Indication: ATRIAL FIBRILLATION
     Route: 065
     Dates: start: 20130212, end: 20131003
  3. KEPPRA [Concomitant]
     Indication: EPILEPSY
     Route: 048
  4. QVAR [Concomitant]
     Route: 055
  5. BRONCHODUAL [Concomitant]
     Route: 055
  6. CRESTOR [Concomitant]
     Route: 048
  7. XANAX [Concomitant]
     Route: 048
  8. CALCIUM AND VITAMIN D3 [Concomitant]
     Route: 048
  9. PAROXETINE [Concomitant]
     Route: 048
  10. OFLOCET [Concomitant]
     Indication: URINARY TRACT INFECTION
     Route: 065

REACTIONS (2)
  - Cerebral haematoma [Fatal]
  - Coma [Recovered/Resolved]
